FAERS Safety Report 21129183 (Version 1)
Quarter: 2022Q3

REPORT INFORMATION
  Report Type: Spontaneous
  Country: FR (occurrence: None)
  Receive Date: 20220725
  Receipt Date: 20220725
  Transmission Date: 20221027
  Serious: Yes (Hospitalization)
  Sender: FDA-Public Use
  Company Number: 2022A257848

PATIENT
  Age: 66 Year
  Sex: Male

DRUGS (15)
  1. DAPAGLIFLOZIN [Suspect]
     Active Substance: DAPAGLIFLOZIN
     Indication: Diabetes mellitus
     Route: 048
     Dates: end: 20220630
  2. PROGRAF [Suspect]
     Active Substance: TACROLIMUS
     Indication: Heart transplant
     Route: 048
     Dates: start: 2015
  3. PROGRAF [Suspect]
     Active Substance: TACROLIMUS
     Indication: Heart transplant
     Route: 048
  4. CELLCEPT [Suspect]
     Active Substance: MYCOPHENOLATE MOFETIL
     Indication: Heart transplant
     Route: 048
     Dates: start: 2015, end: 20220701
  5. ENTRESTO [Suspect]
     Active Substance: SACUBITRIL\VALSARTAN
     Indication: Heart transplant
     Dosage: 49 MG/51 MG
     Route: 048
     Dates: start: 20220612, end: 20220630
  6. ALLOPURINOL [Concomitant]
     Active Substance: ALLOPURINOL
  7. APIXABAN [Concomitant]
     Active Substance: APIXABAN
  8. BROMAZEPAM [Concomitant]
     Active Substance: BROMAZEPAM
  9. PREDNISONE [Concomitant]
     Active Substance: PREDNISONE
  10. URISPAS [Concomitant]
     Active Substance: FLAVOXATE HYDROCHLORIDE
  11. IXPRIM [Concomitant]
     Active Substance: ACETAMINOPHEN\TRAMADOL HYDROCHLORIDE
  12. SPIRONOLACTONE [Concomitant]
     Active Substance: SPIRONOLACTONE
  13. LANSOPRAZOLE [Concomitant]
     Active Substance: LANSOPRAZOLE
  14. BISOPROLOL [Concomitant]
     Active Substance: BISOPROLOL
  15. TAHOR [Concomitant]
     Active Substance: ATORVASTATIN CALCIUM

REACTIONS (2)
  - Acute kidney injury [Recovering/Resolving]
  - Diarrhoea [Recovered/Resolved]

NARRATIVE: CASE EVENT DATE: 20220601
